FAERS Safety Report 11792008 (Version 2)
Quarter: 2015Q4

REPORT INFORMATION
  Report Type: Spontaneous
  Country: US (occurrence: US)
  Receive Date: 20151201
  Receipt Date: 20151214
  Transmission Date: 20160305
  Serious: Yes (Hospitalization, Other)
  Sender: FDA-Public Use
  Company Number: US-ABBVIE-15P-163-1508123-00

PATIENT
  Age: 59 Year
  Sex: Female
  Weight: 72.57 kg

DRUGS (9)
  1. DEPAKOTE [Suspect]
     Active Substance: DIVALPROEX SODIUM
     Dosage: LOW DOSE THAT WAS 2 OF 50S 3 TIMES A DAY
     Route: 065
  2. TOPAMAX [Suspect]
     Active Substance: TOPIRAMATE
     Indication: PRODUCT USED FOR UNKNOWN INDICATION
     Route: 065
  3. NEURONTIN [Suspect]
     Active Substance: GABAPENTIN
     Indication: BACK DISORDER
     Dosage: 100MG: 2 TO 3 TIMES DURING THE DAY. WAS ON 100 AND THEN ON 300
     Route: 065
     Dates: start: 2015, end: 2015
  4. NEURONTIN [Suspect]
     Active Substance: GABAPENTIN
     Indication: BACK PAIN
  5. NAPROXEN. [Suspect]
     Active Substance: NAPROXEN
     Indication: PRODUCT USED FOR UNKNOWN INDICATION
     Route: 065
  6. DEPAKOTE [Suspect]
     Active Substance: DIVALPROEX SODIUM
     Indication: MANIA
     Dosage: TABLETS 2 OF 50S AND 5 OF 100S
     Route: 065
  7. GABAPENTIN. [Suspect]
     Active Substance: GABAPENTIN
     Indication: BACK PAIN
     Route: 048
  8. TEGRETOL [Suspect]
     Active Substance: CARBAMAZEPINE
     Indication: PRODUCT USED FOR UNKNOWN INDICATION
     Route: 065
  9. NEURONTIN [Suspect]
     Active Substance: GABAPENTIN
     Indication: NERVE INJURY

REACTIONS (15)
  - Neurological symptom [Unknown]
  - Mania [Unknown]
  - Cardiac disorder [Unknown]
  - Feeling abnormal [Unknown]
  - Impaired work ability [Unknown]
  - Drug ineffective [Unknown]
  - Diverticulitis intestinal haemorrhagic [Unknown]
  - Weight increased [Unknown]
  - Back pain [Unknown]
  - Intracranial aneurysm [Unknown]
  - Loss of consciousness [Recovered/Resolved]
  - Depression [Unknown]
  - Hypertension [Unknown]
  - Fatigue [Unknown]
  - Gait disturbance [Unknown]

NARRATIVE: CASE EVENT DATE: 2015
